FAERS Safety Report 6037947-9 (Version None)
Quarter: 2009Q1

REPORT INFORMATION
  Report Type: 
  Country: None (occurrence: None)
  Receive Date: 20090113
  Receipt Date: 20090113
  Transmission Date: 20090719
  Serious: Yes (Other)
  Sender: FDA-Public Use
  Company Number: None

PATIENT
  Age: 43 Year
  Sex: Male
  Weight: 117.9352 kg

DRUGS (2)
  1. MORPHINE SUL ER TAB 30 MG ENDO [Suspect]
     Indication: BACK PAIN
     Dosage: 2 A DAY DAILY PO
     Route: 048
  2. MORPHINE SUL ER TAB 30MG ENDO [Suspect]
     Dosage: 2 A DAY DAILY PO
     Route: 048

REACTIONS (3)
  - INADEQUATE ANALGESIA [None]
  - PRODUCT QUALITY ISSUE [None]
  - THERAPEUTIC RESPONSE UNEXPECTED [None]
